FAERS Safety Report 7003737-3 (Version None)
Quarter: 2010Q3

REPORT INFORMATION
  Report Type: 
  Country: None (occurrence: None)
  Receive Date: 20100920
  Receipt Date: 20091101
  Transmission Date: 20110219
  Serious: No
  Sender: FDA-Public Use
  Company Number: US-WYE-H12015509

PATIENT
  Sex: Female

DRUGS (7)
  1. PROTONIX [Interacting]
     Indication: GASTRIC ULCER
     Dosage: UNKNOWN
  2. ACETYLSALICYLIC ACID SRT [Suspect]
     Dosage: UNKNOWN
     Route: 048
  3. LEVOTHYROXINE SODIUM [Concomitant]
  4. LOPRESSOR [Concomitant]
  5. ZOCOR [Concomitant]
  6. PLAVIX [Interacting]
     Indication: CORONARY ARTERIAL STENT INSERTION
     Route: 048
     Dates: start: 20070301
  7. NORVASC [Concomitant]

REACTIONS (1)
  - DRUG INTERACTION [None]
